FAERS Safety Report 24869021 (Version 1)
Quarter: 2025Q1

REPORT INFORMATION
  Report Type: Spontaneous
  Country: US (occurrence: US)
  Receive Date: 20250121
  Receipt Date: 20250121
  Transmission Date: 20250409
  Serious: No
  Sender: JOHNSON AND JOHNSON
  Company Number: US-JNJFOC-20250161822

PATIENT

DRUGS (1)
  1. EVITHROM [Suspect]
     Active Substance: HUMAN THROMBIN
     Indication: Haemostasis
     Route: 061
     Dates: start: 2024

REACTIONS (2)
  - Incision site complication [Recovering/Resolving]
  - Off label use [Unknown]

NARRATIVE: CASE EVENT DATE: 20240101
